FAERS Safety Report 24900567 (Version 1)
Quarter: 2025Q1

REPORT INFORMATION
  Report Type: Spontaneous
  Country: US (occurrence: US)
  Receive Date: 20250129
  Receipt Date: 20250129
  Transmission Date: 20250409
  Serious: Yes (Hospitalization, Other)
  Sender: RADIUS PHARM
  Company Number: US-RADIUS HEALTH INC.-2024US007415

PATIENT
  Sex: Female

DRUGS (1)
  1. TYMLOS [Suspect]
     Active Substance: ABALOPARATIDE
     Indication: Product used for unknown indication
     Route: 058

REACTIONS (8)
  - Pancreatitis [Unknown]
  - Peripheral artery occlusion [Unknown]
  - COVID-19 [Unknown]
  - Hypoacusis [Unknown]
  - Neck pain [Unknown]
  - Peripheral swelling [Unknown]
  - Back pain [Unknown]
  - Pain [Unknown]
